FAERS Safety Report 5246741-8 (Version None)
Quarter: 2007Q1

REPORT INFORMATION
  Report Type: 
  Country: None (occurrence: None)
  Receive Date: 20070226
  Receipt Date: 20070223
  Transmission Date: 20070707
  Serious: Yes (Disabling, Other)
  Sender: FDA-Public Use
  Company Number: JP-BRISTOL-MYERS SQUIBB COMPANY-13504014

PATIENT
  Age: 28 Year
  Sex: Male

DRUGS (5)
  1. BLEOMYCIN [Suspect]
     Indication: TESTIS CANCER
     Route: 042
     Dates: start: 20060220, end: 20060228
  2. VEPESID [Suspect]
     Indication: TESTIS CANCER
     Route: 042
     Dates: start: 20060220, end: 20060224
  3. RANDA [Suspect]
     Indication: TESTIS CANCER
     Route: 042
     Dates: start: 20060220, end: 20060224
  4. SAXIZON [Concomitant]
     Route: 042
     Dates: start: 20060220, end: 20060224
  5. SEROTONE [Concomitant]
     Route: 042
     Dates: start: 20060220, end: 20060224

REACTIONS (1)
  - DEEP VEIN THROMBOSIS [None]
